FAERS Safety Report 12904094 (Version 1)
Quarter: 2016Q4

REPORT INFORMATION
  Report Type: Report from Study
  Country: US (occurrence: US)
  Receive Date: 20161101
  Receipt Date: 20161101
  Transmission Date: 20170207
  Serious: Yes (Other)
  Sender: FDA-Public Use
  Company Number: US-JNJFOC-20161023306

PATIENT

DRUGS (5)
  1. DOXORUBICIN HYDROCHLORIDE. [Suspect]
     Active Substance: DOXORUBICIN HYDROCHLORIDE
     Indication: OSTEOSARCOMA
     Dosage: ON DAY 1 AND 2 (ON WEEKS 1 AND 6)
     Route: 065
  2. METHOTREXATE. [Suspect]
     Active Substance: METHOTREXATE
     Indication: OSTEOSARCOMA
     Dosage: 12 G/M2 OVER 4 HOUR
     Route: 065
  3. CISPLATIN. [Suspect]
     Active Substance: CISPLATIN
     Indication: OSTEOSARCOMA
     Route: 065
  4. IFOSFAMIDE. [Suspect]
     Active Substance: IFOSFAMIDE
     Indication: OSTEOSARCOMA
     Dosage: 14.0 G/M2 AT2.8 G/M2 PER DAY
     Route: 065
  5. ETOPOSIDE. [Suspect]
     Active Substance: ETOPOSIDE
     Indication: OSTEOSARCOMA
     Dosage: PER DAY OVER 1 HOUR ON DAYS 1-5
     Route: 065

REACTIONS (34)
  - Seizure [Unknown]
  - Somnolence [Unknown]
  - Peripheral sensory neuropathy [Unknown]
  - Blood bilirubin abnormal [Unknown]
  - Left ventricular dysfunction [Unknown]
  - Mucosal inflammation [Unknown]
  - Peripheral motor neuropathy [Unknown]
  - Hypoacusis [Unknown]
  - Hyperglycaemia [Unknown]
  - Anaemia [Unknown]
  - Embolism [Unknown]
  - Hypersensitivity [Unknown]
  - Hypophosphataemia [Unknown]
  - Stomatitis [Unknown]
  - Mood altered [Unknown]
  - Electrolyte imbalance [Unknown]
  - Pain [Unknown]
  - Metabolic disorder [Unknown]
  - Confusional state [Unknown]
  - Renal failure [Unknown]
  - Toxicity to various agents [Unknown]
  - Thrombocytopenia [Unknown]
  - Hypokalaemia [Unknown]
  - Hypomagnesaemia [Unknown]
  - Laboratory test abnormal [Unknown]
  - Glomerular filtration rate abnormal [Unknown]
  - Encephalopathy [Unknown]
  - Urinary bladder haemorrhage [Unknown]
  - Neutropenia [Unknown]
  - Febrile neutropenia [Unknown]
  - Thrombosis [Unknown]
  - Leukopenia [Unknown]
  - Colitis [Unknown]
  - Infection [Unknown]
